FAERS Safety Report 7001758-8 (Version None)
Quarter: 2010Q3

REPORT INFORMATION
  Report Type: 
  Country: None (occurrence: None)
  Receive Date: 20100920
  Receipt Date: 20100331
  Transmission Date: 20110219
  Serious: No
  Sender: FDA-Public Use
  Company Number: US-ASTRAZENECA-2010SE15312

PATIENT
  Age: 49 Year
  Sex: Female

DRUGS (10)
  1. SEROQUEL [Suspect]
     Indication: BIPOLAR DISORDER
     Route: 048
     Dates: start: 20040709, end: 20060721
  2. LORTAB [Concomitant]
     Dates: start: 20060721
  3. ZOCOR [Concomitant]
     Indication: LIPIDS INCREASED
     Route: 048
     Dates: start: 20060701
  4. PROTONIX [Concomitant]
     Indication: GASTROOESOPHAGEAL REFLUX DISEASE
     Dates: start: 20060701
  5. LEXAPRO [Concomitant]
     Indication: BIPOLAR DISORDER
     Dates: start: 20040709
  6. KLONOPIN [Concomitant]
     Indication: BIPOLAR DISORDER
     Dates: start: 20060701
  7. REQUIP [Concomitant]
     Dates: start: 20060701
  8. LITHIUM CARBONATE ER [Concomitant]
     Dates: start: 20020607
  9. TRAMADOL HCL [Concomitant]
     Dates: start: 20040924
  10. METHOCARBAMOL [Concomitant]
     Dates: start: 20041028

REACTIONS (10)
  - ABDOMINAL PAIN LOWER [None]
  - DIABETES MELLITUS INADEQUATE CONTROL [None]
  - HYPERTENSION [None]
  - HYPOTHYROIDISM [None]
  - INTERVERTEBRAL DISC DEGENERATION [None]
  - METABOLIC SYNDROME [None]
  - OBESITY [None]
  - ONYCHOMYCOSIS [None]
  - OSTEOARTHRITIS [None]
  - SPINAL DISORDER [None]
